FAERS Safety Report 4443800-4 (Version None)
Quarter: 2004Q3

REPORT INFORMATION
  Report Type: 
  Country: None (occurrence: None)
  Receive Date: 20040802
  Receipt Date: 20040507
  Transmission Date: 20050211
  Serious: No
  Sender: FDA-Public Use
  Company Number: 2004-117875-NL

PATIENT
  Age: 23 Year
  Sex: Female
  Weight: 63.6 kg

DRUGS (8)
  1. NUVARING [Suspect]
     Indication: CONTRACEPTION
     Dosage: DF DAILY VAGINAL
     Route: 067
     Dates: start: 20030601
  2. NUVARING [Suspect]
     Indication: MENSTRUAL DISORDER
     Dosage: DF DAILY VAGINAL
     Route: 067
     Dates: start: 20030601
  3. ADDERALL 10 [Concomitant]
  4. ZOLOFT /USA/ [Concomitant]
  5. XANAX [Concomitant]
  6. ALBUTEROL [Concomitant]
  7. STEROID INHALERS [Concomitant]
  8. ADVIL [Concomitant]

REACTIONS (2)
  - MENORRHAGIA [None]
  - METRORRHAGIA [None]
